FAERS Safety Report 9974136 (Version 1)
Quarter: 2014Q1

REPORT INFORMATION
  Report Type: Report from Study
  Country: US (occurrence: US)
  Receive Date: 20140306
  Receipt Date: 20140306
  Transmission Date: 20141002
  Serious: No
  Sender: FDA-Public Use
  Company Number: US-ABBVIE-13P-163-1155047-00

PATIENT
  Age: 31 Year
  Sex: Female

DRUGS (8)
  1. HUMIRA [Suspect]
     Indication: CROHN^S DISEASE
     Dosage: LOADING DOSE, INJECTION
     Route: 058
     Dates: start: 20131004, end: 20131004
  2. HUMIRA [Suspect]
     Dates: start: 20131005
  3. SERTRALINE [Concomitant]
     Indication: ANXIETY
  4. RANITIDINE [Concomitant]
     Indication: NAUSEA
  5. ONDANSETRON [Concomitant]
     Indication: NAUSEA
  6. PROMETHAZINE [Concomitant]
     Indication: NAUSEA
  7. MELATONIN [Concomitant]
     Indication: INSOMNIA
     Dosage: AT BEDTIME
  8. BIRTH CONTROL PILL [Concomitant]
     Indication: PRODUCT USED FOR UNKNOWN INDICATION

REACTIONS (2)
  - Wrong technique in drug usage process [Recovered/Resolved]
  - Incorrect dose administered [Recovered/Resolved]
